FAERS Safety Report 10264246 (Version 1)
Quarter: 2014Q2

REPORT INFORMATION
  Report Type: Spontaneous
  Country: TR (occurrence: None)
  Receive Date: 20140624
  Receipt Date: 20140624
  Transmission Date: 20141212
  Serious: Yes (Hospitalization, Other)
  Sender: FDA-Public Use
  Company Number: 2014AP003401

PATIENT
  Age: 78 Year
  Sex: Male

DRUGS (1)
  1. MELOXICAM (MELIOXICAM) UNKNOWN [Suspect]
     Indication: BACK PAIN

REACTIONS (1)
  - Inappropriate antidiuretic hormone secretion [None]
